FAERS Safety Report 16942915 (Version 1)
Quarter: 2019Q4

REPORT INFORMATION
  Report Type: Spontaneous
  Country: US (occurrence: US)
  Receive Date: 20191021
  Receipt Date: 20191021
  Transmission Date: 20200122
  Serious: Yes (Other)
  Sender: FDA-Public Use
  Company Number: US-JNJFOC-20191023079

PATIENT
  Age: 73 Year
  Sex: Male

DRUGS (1)
  1. IMBRUVICA [Suspect]
     Active Substance: IBRUTINIB
     Indication: B-CELL LYMPHOMA
     Dosage: 280 MG, QD
     Route: 065

REACTIONS (4)
  - Cerebral disorder [Unknown]
  - Product use issue [Unknown]
  - Intervertebral disc disorder [Unknown]
  - Off label use [Unknown]
